FAERS Safety Report 7461401-0 (Version None)
Quarter: 2011Q2

REPORT INFORMATION
  Report Type: 
  Country: None (occurrence: None)
  Receive Date: 20110428
  Receipt Date: 20100805
  Transmission Date: 20111010
  Serious: Yes (Other)
  Sender: FDA-Public Use
  Company Number: 2010GW000445

PATIENT
  Age: 81 Year
  Sex: Female

DRUGS (1)
  1. ZYCLARA [Suspect]
     Indication: ACTINIC KERATOSIS
     Dosage: 3.75 PCT;TOP
     Route: 061
     Dates: start: 20100526, end: 20100531

REACTIONS (2)
  - CARDIAC FAILURE CONGESTIVE [None]
  - FEELING ABNORMAL [None]
